FAERS Safety Report 19042164 (Version 1)
Quarter: 2021Q1

REPORT INFORMATION
  Report Type: Spontaneous
  Country: GB (occurrence: GB)
  Receive Date: 20210323
  Receipt Date: 20210323
  Transmission Date: 20210420
  Serious: Yes (Other)
  Sender: FDA-Public Use
  Company Number: GB-BAYER-2021-105169

PATIENT
  Age: 32 Year
  Sex: Female
  Weight: 55 kg

DRUGS (3)
  1. MULTIVITAMINS;MINERALS [Concomitant]
     Active Substance: MINERALS\VITAMINS
     Indication: ILL-DEFINED DISORDER
  2. MIRENA [Suspect]
     Active Substance: LEVONORGESTREL
     Indication: DYSMENORRHOEA
     Dosage: 20 ?G PER DAY CONTINUOUSLY
     Route: 015
     Dates: start: 20210302
  3. COD LIVER OIL [Concomitant]
     Active Substance: COD LIVER OIL
     Indication: ILL-DEFINED DISORDER

REACTIONS (8)
  - Depressed mood [Unknown]
  - Abdominal pain [Unknown]
  - Tearfulness [Unknown]
  - Pain [Unknown]
  - Abdominal distension [Unknown]
  - Nausea [Unknown]
  - Pelvic pain [Unknown]
  - Back pain [Unknown]

NARRATIVE: CASE EVENT DATE: 20210302
